FAERS Safety Report 9366396 (Version 2)
Quarter: 2013Q2

REPORT INFORMATION
  Report Type: Spontaneous
  Country: US (occurrence: None)
  Receive Date: 20130620
  Receipt Date: 20130626
  Transmission Date: 20140414
  Serious: Yes (Hospitalization)
  Sender: FDA-Public Use
  Company Number: UTC-033744

PATIENT
  Age: 75 Year
  Sex: Male

DRUGS (1)
  1. TYVASO [Suspect]
     Indication: PULMONARY ARTERIAL HYPERTENSION
     Dosage: 216MCG (54 MCG, 4 IN 1 D) INHALATION
     Route: 055
     Dates: start: 20130225, end: 20130603

REACTIONS (2)
  - Haematochezia [None]
  - Haemoglobin decreased [None]
